FAERS Safety Report 4528347-9 (Version None)
Quarter: 2004Q4

REPORT INFORMATION
  Report Type: 
  Country: None (occurrence: None)
  Receive Date: 20041130
  Receipt Date: 20040318
  Transmission Date: 20050328
  Serious: Yes (Disabling)
  Sender: FDA-Public Use
  Company Number: WAES 0403USA01672

PATIENT
  Age: 43 Year
  Sex: Female
  Weight: 82.1011 kg

DRUGS (2)
  1. FOSAMAX [Suspect]
     Indication: OSTEOPENIA
     Dosage: 70 MG/WKY/PO
     Route: 048
     Dates: start: 20031101, end: 20040315
  2. ORTHO-NOVUM [Concomitant]

REACTIONS (2)
  - APHTHOUS STOMATITIS [None]
  - DYSPEPSIA [None]
